FAERS Safety Report 5123111-4 (Version None)
Quarter: 2006Q4

REPORT INFORMATION
  Report Type: 
  Country: None (occurrence: None)
  Receive Date: 20061004
  Receipt Date: 20061004
  Transmission Date: 20070319
  Serious: Yes (Life-Threatening, Hospitalization)
  Sender: FDA-Public Use
  Company Number: None

PATIENT
  Age: 45 Year
  Sex: Male
  Weight: 103 kg

DRUGS (2)
  1. LITHIUM 450 MG [Suspect]
     Indication: BIPOLAR DISORDER
     Dosage: 450 MG BID
     Dates: start: 20020611, end: 20060823
  2. NAPROXEN [Suspect]
     Dosage: UNKNOWN (OTC)
     Dates: start: 20050706, end: 20060823

REACTIONS (5)
  - ANTIPSYCHOTIC DRUG LEVEL ABOVE THERAPEUTIC [None]
  - DIZZINESS [None]
  - LOSS OF CONSCIOUSNESS [None]
  - ORAL INTAKE REDUCED [None]
  - RENAL FAILURE ACUTE [None]
